FAERS Safety Report 5279882-X (Version None)
Quarter: 2007Q1

REPORT INFORMATION
  Report Type: 
  Country: None (occurrence: None)
  Receive Date: 20061215
  Receipt Date: 20060728
  Transmission Date: 20070707
  Serious: Yes (Other)
  Sender: FDA-Public Use
  Company Number: HQWYE528131JUL06

PATIENT
  Sex: Female
  Weight: 31.78 kg

DRUGS (1)
  1. EFFEXOR XR [Suspect]
     Indication: ANOREXIA
     Dosage: SEE IMAGE
     Route: 048

REACTIONS (2)
  - BLOOD PRESSURE INCREASED [None]
  - RENAL FUNCTION TEST ABNORMAL [None]
